FAERS Safety Report 4585821-7 (Version None)
Quarter: 2005Q1

REPORT INFORMATION
  Report Type: 
  Country: None (occurrence: None)
  Receive Date: 20050217
  Receipt Date: 20041217
  Transmission Date: 20050727
  Serious: Yes (Death, Hospitalization)
  Sender: FDA-Public Use
  Company Number: GB-SANOFI-SYNTHELABO-F01200403944

PATIENT
  Sex: Male

DRUGS (10)
  1. DEXAMETHASONE [Concomitant]
     Route: 065
     Dates: end: 20040714
  2. CYCLIZINE [Concomitant]
     Route: 065
     Dates: end: 20040929
  3. METOCLOPRAMIDE [Concomitant]
     Route: 065
     Dates: end: 20040714
  4. FLUOXETINE [Concomitant]
     Route: 065
     Dates: end: 20040818
  5. CAPECITABINE [Suspect]
     Dosage: 1800 MG TWICE DAILY FOR 2 WEEKS, Q3W
     Route: 048
  6. BEVACIZUMAB OR PLACEBO [Suspect]
     Route: 042
     Dates: start: 20040803, end: 20040803
  7. LOPERAMIDE HCL [Concomitant]
     Route: 065
  8. IBUPROFEN [Concomitant]
  9. FLIXOTIDE [Concomitant]
  10. OXALIPLATIN [Suspect]
     Indication: COLORECTAL CANCER METASTATIC
     Route: 042

REACTIONS (6)
  - CELLULITIS [None]
  - CONFUSIONAL STATE [None]
  - DIARRHOEA [None]
  - DISSEMINATED INTRAVASCULAR COAGULATION [None]
  - SEPSIS [None]
  - VOMITING [None]
